FAERS Safety Report 4299153-8 (Version None)
Quarter: 2004Q1

REPORT INFORMATION
  Report Type: 
  Country: None (occurrence: None)
  Receive Date: 20040217
  Receipt Date: 20040206
  Transmission Date: 20041129
  Serious: Yes (Other)
  Sender: FDA-Public Use
  Company Number: 2004194842JP

PATIENT
  Age: 64 Year
  Sex: Male
  Weight: 60 kg

DRUGS (12)
  1. CAMPTOSAR [Suspect]
     Indication: GASTRIC CANCER
     Dosage: 80 MG/M2, CYCLE 1, IV DRIP
     Route: 041
     Dates: start: 20030918, end: 20031001
  2. CAMPTOSAR [Suspect]
     Indication: GASTRIC CANCER
     Dosage: 80 MG/M2, CYCLE 1, IV DRIP
     Route: 041
     Dates: start: 20031021, end: 20031103
  3. CAMPTOSAR [Suspect]
     Indication: GASTRIC CANCER
     Dosage: 80 MG/M2, CYCLE 1, IV DRIP
     Route: 041
     Dates: start: 20031125, end: 20031202
  4. TS-1(TEGAFUR, GIMESTAT, OTASTAT, POTASSIUM) [Suspect]
     Indication: GASTRIC CANCER
     Dosage: CYCLE 1, ORAL
     Route: 048
     Dates: start: 20030918, end: 20031001
  5. TS-1(TEGAFUR, GIMESTAT, OTASTAT, POTASSIUM) [Suspect]
     Indication: GASTRIC CANCER
     Dosage: CYCLE 1, ORAL
     Route: 048
     Dates: start: 20031021, end: 20031103
  6. TS-1(TEGAFUR, GIMESTAT, OTASTAT, POTASSIUM) [Suspect]
     Indication: GASTRIC CANCER
     Dosage: CYCLE 1, ORAL
     Route: 048
     Dates: start: 20031125, end: 20031208
  7. ADONA (CARBAZOCHROME SODIUM SULFONATE) [Concomitant]
  8. KALLIKREIN (KALLIDNOGENASE) [Concomitant]
  9. GLYBURIDE [Concomitant]
  10. MIKELAN (CARTEOLOL HYDROCHLORIDE) [Concomitant]
  11. PARIET (RABERPRAZOLE SODIUM) [Concomitant]
  12. KYTRIL [Concomitant]

REACTIONS (3)
  - DIARRHOEA [None]
  - HYPOALBUMINAEMIA [None]
  - OEDEMA PERIPHERAL [None]
